FAERS Safety Report 22251079 (Version 1)
Quarter: 2023Q2

REPORT INFORMATION
  Report Type: Spontaneous
  Country: US (occurrence: None)
  Receive Date: 20230425
  Receipt Date: 20230425
  Transmission Date: 20230722
  Serious: Yes (Hospitalization, Other)
  Sender: FDA-Public Use
  Company Number: None

PATIENT
  Age: 53 Year
  Sex: Male
  Weight: 87.75 kg

DRUGS (7)
  1. TRILEPTAL [Suspect]
     Active Substance: OXCARBAZEPINE
     Indication: Mood swings
     Dosage: OTHER QUANTITY : 2 TABLET(S);?FREQUENCY : TWICE A DAY;?
     Route: 048
  2. LEXAPRO [Concomitant]
  3. metforman [Concomitant]
  4. ATORVASTATIN [Concomitant]
  5. LEVOTHYROXINE [Concomitant]
  6. LISINOPRIL [Concomitant]
     Active Substance: LISINOPRIL
  7. ASPIRIN [Concomitant]
     Active Substance: ASPIRIN

REACTIONS (4)
  - Fall [None]
  - Loss of consciousness [None]
  - Dizziness [None]
  - Retching [None]

NARRATIVE: CASE EVENT DATE: 20210319
